FAERS Safety Report 9749504 (Version 3)
Quarter: 2014Q2

REPORT INFORMATION
  Report Type: Spontaneous
  Country: US (occurrence: US)
  Receive Date: 20131212
  Receipt Date: 20140410
  Transmission Date: 20141212
  Serious: Yes (Death, Hospitalization, Other)
  Sender: FDA-Public Use
  Company Number: US-GILEAD-2013-0089622

PATIENT
  Age: 23 Year
  Sex: Female
  Weight: 59 kg

DRUGS (6)
  1. LETAIRIS [Suspect]
     Indication: PULMONARY HYPERTENSION
     Dosage: 5 MG, QD
     Route: 048
     Dates: start: 20090528, end: 20131211
  2. LETAIRIS [Suspect]
     Indication: HEART DISEASE CONGENITAL
  3. ENALAPRIL [Concomitant]
     Indication: CARDIAC DISORDER
  4. SILDENAFIL [Concomitant]
     Indication: PULMONARY HYPERTENSION
  5. LASIX                              /00032601/ [Concomitant]
     Indication: DIURETIC THERAPY
  6. ASPIRIN [Concomitant]
     Indication: THROMBOSIS PROPHYLAXIS

REACTIONS (6)
  - Pulmonary vascular disorder [Fatal]
  - Cardiac failure [Not Recovered/Not Resolved]
  - Heterotaxia [Fatal]
  - Chest pain [Fatal]
  - Palpitations [Fatal]
  - Dyspnoea [Fatal]
